FAERS Safety Report 5750042-9 (Version None)
Quarter: 2008Q2

REPORT INFORMATION
  Report Type: 
  Country: None (occurrence: None)
  Receive Date: 20080527
  Receipt Date: 20080310
  Transmission Date: 20081010
  Serious: Yes (Hospitalization)
  Sender: FDA-Public Use
  Company Number: US-BOEHRINGER INGELHEIM GMBH, GERMANY-2007-BP-16495BP

PATIENT
  Sex: Male
  Weight: 99 kg

DRUGS (55)
  1. MIRAPEX [Suspect]
     Indication: RESTLESS LEGS SYNDROME
     Dates: start: 20010123, end: 20050701
  2. DARVOCET-N [Concomitant]
  3. LORTAB [Concomitant]
  4. ZITHROMAX [Concomitant]
  5. ALLEGRA [Concomitant]
  6. CLONAZEPAM [Concomitant]
  7. TESTOSTERONE [Concomitant]
  8. TRILYTE [Concomitant]
  9. METOCLOPRAMIDE [Concomitant]
  10. EFFEXOR [Concomitant]
  11. ADVAIR DISKUS 100/50 [Concomitant]
  12. ALDACTONE [Concomitant]
  13. PRILOSEC [Concomitant]
  14. SYNTHROID [Concomitant]
  15. VICODIN [Concomitant]
  16. ZOLOFT [Concomitant]
  17. AMOXICILLIN [Concomitant]
  18. ASPIRIN [Concomitant]
     Indication: CARDIAC DISORDER
  19. VASOTEC [Concomitant]
  20. SONATA [Concomitant]
  21. HYDROCORTISONE [Concomitant]
  22. LOTRISONE [Concomitant]
  23. ANTIVERT [Concomitant]
  24. MEDROL [Concomitant]
  25. CLIMARA [Concomitant]
  26. ANDROGEL [Concomitant]
  27. RETIN-A [Concomitant]
  28. PACERONE [Concomitant]
  29. LEXAPRO [Concomitant]
  30. RESTORIL [Concomitant]
  31. LIPITOR [Concomitant]
     Indication: BLOOD CHOLESTEROL
  32. INDOMETHACIN [Concomitant]
  33. VIAGRA [Concomitant]
  34. NEXIUM [Concomitant]
  35. LASIX [Concomitant]
     Indication: CARDIAC DISORDER
  36. RANEXA [Concomitant]
     Indication: CARDIAC DISORDER
  37. AMIODARONE [Concomitant]
     Indication: CARDIAC DISORDER
  38. MICARDIS [Concomitant]
     Indication: HYPERTENSION
  39. COREG CR [Concomitant]
     Indication: CARDIAC DISORDER
  40. POTASSIUM CHLORIDE [Concomitant]
     Indication: ROUTINE HEALTH MAINTENANCE
  41. LEVOXYL [Concomitant]
     Indication: CARDIAC DISORDER
  42. NIACIN [Concomitant]
     Indication: BLOOD CHOLESTEROL
  43. CARVEDILOL [Concomitant]
     Indication: CARDIAC DISORDER
  44. MILRINONE LACTATE [Concomitant]
     Indication: CARDIAC DISORDER
  45. NITROGLYCERIN [Concomitant]
  46. PLAVIX [Concomitant]
  47. PRAVACHOL [Concomitant]
  48. NEURONTIN [Concomitant]
  49. TOPROL-XL [Concomitant]
  50. VITAMIN E [Concomitant]
  51. FOLIC ACID [Concomitant]
  52. ASCORBIC ACID [Concomitant]
  53. COENZYME Q10 [Concomitant]
  54. SAW PALMETTO [Concomitant]
  55. LEVOTHYROXINE SODIUM [Concomitant]

REACTIONS (4)
  - EMOTIONAL DISTRESS [None]
  - LIBIDO INCREASED [None]
  - OBSESSIVE-COMPULSIVE DISORDER [None]
  - PATHOLOGICAL GAMBLING [None]
